FAERS Safety Report 4456131-3 (Version None)
Quarter: 2004Q3

REPORT INFORMATION
  Report Type: 
  Country: None (occurrence: None)
  Receive Date: 20040920
  Receipt Date: 20040906
  Transmission Date: 20050211
  Serious: Yes (Other)
  Sender: FDA-Public Use
  Company Number: 2004059193

PATIENT
  Age: 47 Year
  Sex: Male
  Weight: 79 kg

DRUGS (6)
  1. ATORVASTATIN CALCIUM [Suspect]
     Indication: MYOCARDIAL INFARCTION
     Dosage: 20 MG (20 MG, 1 IN 1 D), ORAL
     Route: 048
     Dates: start: 20001013, end: 20031003
  2. ACETYLSALICYLIC ACID SRT [Concomitant]
  3. LORAZEPAM [Concomitant]
  4. DILTIAZEM [Concomitant]
  5. LOSARTAN (LOSARTAN) [Concomitant]
  6. NITROGLYCERIN [Concomitant]

REACTIONS (5)
  - BLOOD CREATINE PHOSPHOKINASE INCREASED [None]
  - CEREBROVASCULAR ACCIDENT [None]
  - MUSCLE CRAMP [None]
  - MYALGIA [None]
  - PHLEBITIS [None]
